FAERS Safety Report 15289975 (Version 1)
Quarter: 2018Q3

REPORT INFORMATION
  Report Type: Spontaneous
  Country: US (occurrence: US)
  Receive Date: 20180804
  Receipt Date: 20180804
  Transmission Date: 20181010
  Serious: No
  Sender: FDA-Public Use
  Company Number: None

PATIENT
  Age: 23 Year
  Sex: Female
  Weight: 65.77 kg

DRUGS (7)
  1. PARAGARD T 380A [Suspect]
     Active Substance: COPPER
  2. EXCEDRIN [Concomitant]
     Active Substance: ACETAMINOPHEN\ASPIRIN\CAFFEINE
  3. MULTI VITAMIN [Concomitant]
     Active Substance: VITAMINS
  4. ACETAMINOPHEN. [Concomitant]
     Active Substance: ACETAMINOPHEN
  5. IBUPROFEN. [Concomitant]
     Active Substance: IBUPROFEN
  6. PROBIOTICS [Concomitant]
     Active Substance: PROBIOTICS NOS
  7. WELLBUTRIN HYDROXYZINE [Concomitant]

REACTIONS (3)
  - Uterine perforation [None]
  - Device dislocation [None]
  - Pain [None]

NARRATIVE: CASE EVENT DATE: 20180803
